FAERS Safety Report 9240995 (Version 1)
Quarter: 2013Q2

REPORT INFORMATION
  Report Type: Spontaneous
  Country: US (occurrence: US)
  Receive Date: 20130418
  Receipt Date: 20130418
  Transmission Date: 20140414
  Serious: No
  Sender: FDA-Public Use
  Company Number: US-SANOFI-AVENTIS-2013SA016908

PATIENT
  Age: 75 Year
  Sex: Male

DRUGS (2)
  1. ENOXAPARIN SODIUM [Suspect]
     Indication: PROPHYLAXIS
     Route: 051
     Dates: start: 20130207
  2. WARFARIN [Suspect]

REACTIONS (2)
  - Injection site bruising [Not Recovered/Not Resolved]
  - International normalised ratio increased [Not Recovered/Not Resolved]
